FAERS Safety Report 8934340 (Version 1)
Quarter: 2012Q4

REPORT INFORMATION
  Report Type: Report from Study
  Country: ES (occurrence: ES)
  Receive Date: 20121129
  Receipt Date: 20121129
  Transmission Date: 20130627
  Serious: Yes (Hospitalization, Other)
  Sender: FDA-Public Use
  Company Number: ES-ROCHE-1157301

PATIENT
  Age: 64 Year
  Sex: Female

DRUGS (5)
  1. MYCOPHENOLATE MOFETIL [Suspect]
     Indication: RENAL TRANSPLANT
     Route: 065
  2. STATINS NOS [Concomitant]
     Route: 065
  3. BASILIXIMAB [Concomitant]
     Route: 065
  4. PREDNISONE [Concomitant]
     Route: 065
  5. TACROLIMUS [Concomitant]
     Route: 065

REACTIONS (12)
  - Oedema peripheral [Unknown]
  - Asthenia [Recovered/Resolved]
  - General physical health deterioration [Unknown]
  - Dyspnoea exertional [Unknown]
  - Anaemia [Unknown]
  - Leukopenia [Recovering/Resolving]
  - Deep vein thrombosis [Unknown]
  - Pulmonary embolism [Recovering/Resolving]
  - Renal tubular necrosis [Recovering/Resolving]
  - Urinary tract infection [Recovering/Resolving]
  - Seroma [Unknown]
  - Cytomegalovirus viraemia [Recovering/Resolving]
